FAERS Safety Report 9079791 (Version 1)
Quarter: 2013Q1

REPORT INFORMATION
  Report Type: Spontaneous
  Country: FR (occurrence: FR)
  Receive Date: 20130215
  Receipt Date: 20130215
  Transmission Date: 20140127
  Serious: Yes (Congenital Anomaly)
  Sender: FDA-Public Use
  Company Number: FR-GLAXOSMITHKLINE-B0865065A

PATIENT
  Age: 0 None
  Sex: Female
  Weight: 2.1 kg

DRUGS (2)
  1. LAMICTAL [Suspect]
     Indication: EPILEPSY
     Dosage: 25MG PER DAY
     Route: 064
     Dates: start: 2012, end: 20130117
  2. METOPROLOL [Suspect]
     Indication: ARRHYTHMIA
     Dosage: 100MG PER DAY
     Route: 064
     Dates: start: 2012, end: 20130117

REACTIONS (2)
  - Low birth weight baby [Recovering/Resolving]
  - Foetal exposure during pregnancy [Unknown]
